FAERS Safety Report 10827191 (Version 2)
Quarter: 2016Q1

REPORT INFORMATION
  Report Type: Report from Study
  Country: US (occurrence: US)
  Receive Date: 20150219
  Receipt Date: 20160201
  Transmission Date: 20160525
  Serious: Yes (Other)
  Sender: FDA-Public Use
  Company Number: US-ABBVIE-14K-163-1321357-00

PATIENT
  Age: 36 Year
  Sex: Male

DRUGS (1)
  1. HUMIRA [Suspect]
     Active Substance: ADALIMUMAB
     Indication: CROHN^S DISEASE
     Route: 058
     Dates: start: 20141111, end: 20141209

REACTIONS (16)
  - Arthralgia [Not Recovered/Not Resolved]
  - Respiratory disorder [Unknown]
  - Dehydration [Unknown]
  - Abdominal discomfort [Recovering/Resolving]
  - Malaise [Not Recovered/Not Resolved]
  - Pyrexia [Recovered/Resolved]
  - Fatigue [Not Recovered/Not Resolved]
  - Bronchitis [Recovering/Resolving]
  - Chills [Not Recovered/Not Resolved]
  - Upper respiratory tract infection [Recovering/Resolving]
  - Chest discomfort [Not Recovered/Not Resolved]
  - Nausea [Unknown]
  - Influenza like illness [Recovering/Resolving]
  - Vomiting [Unknown]
  - Cough [Unknown]
  - Upper respiratory tract congestion [Unknown]

NARRATIVE: CASE EVENT DATE: 20141129
